FAERS Safety Report 6640785-7 (Version None)
Quarter: 2010Q1

REPORT INFORMATION
  Report Type: 
  Country: None (occurrence: None)
  Receive Date: 20100318
  Receipt Date: 20100307
  Transmission Date: 20100710
  Serious: Yes (Other)
  Sender: FDA-Public Use
  Company Number: US-PFIZER INC-2010029964

PATIENT
  Sex: Male
  Weight: 88.435 kg

DRUGS (10)
  1. CHANTIX [Suspect]
     Indication: SMOKING CESSATION THERAPY
     Dosage: 0.5 MG, 2X/DAY
     Route: 048
     Dates: start: 20100126
  2. CHANTIX [Suspect]
     Dosage: 1 MG, UNK
  3. VICODIN [Concomitant]
     Dosage: UNK, 4X/DAY
  4. TEGRETOL [Concomitant]
     Dosage: 200 MG, 3X/DAY
  5. ELAVIL [Concomitant]
     Dosage: 100 MG, UNK
  6. ATENOLOL [Concomitant]
     Dosage: 50 MG, 1X/DAY
  7. PAXIL [Concomitant]
     Dosage: 20 MG, 1X/DAY
  8. PRILOSEC [Concomitant]
     Dosage: 40 MG, 1X/DAY
  9. TRAZODONE [Concomitant]
     Dosage: 300 MG, UNK
  10. IBUPROFEN [Concomitant]
     Dosage: 800 MG, 1X/DAY

REACTIONS (2)
  - AGGRESSION [None]
  - ANGER [None]
